FAERS Safety Report 8359168-7 (Version None)
Quarter: 2012Q2

REPORT INFORMATION
  Report Type: 
  Country: None (occurrence: None)
  Receive Date: 20120511
  Receipt Date: 20120511
  Transmission Date: 20120825
  Serious: Yes (Hospitalization, Other)
  Sender: FDA-Public Use
  Company Number: None

PATIENT
  Sex: Female
  Weight: 94.3482 kg

DRUGS (1)
  1. NARCAN [Suspect]
     Indication: OVERDOSE
     Dates: start: 20120313

REACTIONS (4)
  - SCREAMING [None]
  - PAIN [None]
  - FEELING HOT [None]
  - RHABDOMYOLYSIS [None]
